FAERS Safety Report 13275501 (Version 1)
Quarter: 2017Q1

REPORT INFORMATION
  Report Type: Spontaneous
  Country: US (occurrence: US)
  Receive Date: 20170228
  Receipt Date: 20170228
  Transmission Date: 20170428
  Serious: Yes (Other)
  Sender: FDA-Public Use
  Company Number: US-ROCHE-1899068

PATIENT
  Age: 50 Year
  Sex: Female

DRUGS (2)
  1. ACTIVASE [Suspect]
     Active Substance: ALTEPLASE
     Indication: PRODUCT USED FOR UNKNOWN INDICATION
     Route: 065
  2. TISSUE PLASMINOGEN ACTIVATOR (UNK INGREDIENTS) [Concomitant]

REACTIONS (2)
  - Haemorrhagic transformation stroke [Unknown]
  - Basilar artery occlusion [Unknown]
